FAERS Safety Report 15002207 (Version 2)
Quarter: 2018Q3

REPORT INFORMATION
  Report Type: Spontaneous
  Country: NO (occurrence: NO)
  Receive Date: 20180612
  Receipt Date: 20180801
  Transmission Date: 20181010
  Serious: Yes (Death, Life-Threatening, Hospitalization)
  Sender: FDA-Public Use
  Company Number: NO-CELGENEUS-NOR-20180510392

PATIENT
  Age: 79 Year
  Sex: Female

DRUGS (1)
  1. AZACITIDINE. [Suspect]
     Active Substance: AZACITIDINE
     Indication: MYELODYSPLASTIC SYNDROME
     Dosage: 100 MILLIGRAM/SQ. METER
     Route: 058
     Dates: start: 20170606, end: 20170612

REACTIONS (2)
  - Acute febrile neutrophilic dermatosis [Fatal]
  - Lung consolidation [Fatal]

NARRATIVE: CASE EVENT DATE: 20170606
